FAERS Safety Report 5511241-4 (Version None)
Quarter: 2007Q4

REPORT INFORMATION
  Report Type: 
  Country: None (occurrence: None)
  Receive Date: 20071109
  Receipt Date: 20071030
  Transmission Date: 20080405
  Serious: Yes (Hospitalization)
  Sender: FDA-Public Use
  Company Number: IT-ROCHE-447831

PATIENT
  Age: 58 Year
  Sex: Male

DRUGS (8)
  1. MYCOPHENOLATE MOFETIL [Suspect]
     Route: 042
     Dates: start: 20060411
  2. FK506 [Suspect]
     Route: 048
     Dates: start: 20060411, end: 20060416
  3. FK506 [Suspect]
     Route: 048
     Dates: start: 20060422, end: 20060423
  4. LAMIVUDINE [Concomitant]
  5. BACTRIM [Concomitant]
  6. PIPERACILLIN AND TAZOBACTAM [Concomitant]
  7. GENTAMICIN [Concomitant]
  8. FLUCONAZOLE [Concomitant]

REACTIONS (3)
  - BILE DUCT STENOSIS [None]
  - COMPLICATIONS OF TRANSPLANT SURGERY [None]
  - LIVER TRANSPLANT REJECTION [None]
